FAERS Safety Report 9918007 (Version 2)
Quarter: 2014Q1

REPORT INFORMATION
  Report Type: Spontaneous
  Country: US (occurrence: US)
  Receive Date: 20140222
  Receipt Date: 20140331
  Transmission Date: 20141002
  Serious: No
  Sender: FDA-Public Use
  Company Number: US-009507513-1402USA010705

PATIENT
  Sex: Female
  Weight: 126.98 kg

DRUGS (4)
  1. OXYTROL FOR WOMEN [Suspect]
     Indication: HYPERTONIC BLADDER
     Dosage: UNK, ONCE
     Route: 062
  2. OXYTROL FOR WOMEN [Suspect]
     Indication: POLLAKIURIA
  3. MECLIZINE [Concomitant]
     Indication: MENIERE^S DISEASE
     Dosage: UNK, UNKNOWN
  4. AMITRIPTYLINE HYDROCHLORIDE [Concomitant]
     Indication: TINNITUS
     Dosage: UNK, UNKNOWN

REACTIONS (1)
  - Drug ineffective [Unknown]
